FAERS Safety Report 4909077-8 (Version None)
Quarter: 2006Q1

REPORT INFORMATION
  Report Type: 
  Country: None (occurrence: None)
  Receive Date: 20060209
  Receipt Date: 20060209
  Transmission Date: 20060701
  Serious: No
  Sender: FDA-Public Use
  Company Number: None

PATIENT
  Age: 45 Year
  Sex: Female
  Weight: 54.4316 kg

DRUGS (1)
  1. ZICAM NO-DRIP LIQUID NASAL SPRAY HOMEOPATHIC ZICAM LLC [Suspect]
     Indication: NASOPHARYNGITIS
     Dosage: ONE PUMP IN EACH NOSTRIL ONCE EVERY 4 HOURS NASAL
     Route: 045
     Dates: start: 20050911, end: 20050911

REACTIONS (6)
  - AGEUSIA [None]
  - ANOSMIA [None]
  - HEADACHE [None]
  - LACRIMATION INCREASED [None]
  - NASAL DISCOMFORT [None]
  - RHINORRHOEA [None]
